FAERS Safety Report 9364327 (Version 1)
Quarter: 2013Q2

REPORT INFORMATION
  Report Type: Report from Study
  Country: CA (occurrence: CA)
  Receive Date: 20130624
  Receipt Date: 20130624
  Transmission Date: 20140414
  Serious: Yes (Hospitalization)
  Sender: FDA-Public Use
  Company Number: CA-ELI_LILLY_AND_COMPANY-CA201305000193

PATIENT
  Age: 71 Year
  Sex: Female

DRUGS (13)
  1. TERIPARATIDE [Suspect]
     Indication: OSTEOPOROSIS
     Dosage: 20 UG, QD
     Route: 058
     Dates: start: 20121010, end: 20130514
  2. CLONIDINE [Concomitant]
  3. AMLODIPINE [Concomitant]
  4. DOMPERIDONE [Concomitant]
  5. PREVACID [Concomitant]
  6. LINAGLIPTIN [Concomitant]
  7. GLICLAZIDE [Concomitant]
  8. TECTA [Concomitant]
  9. CIPRALEX [Concomitant]
  10. APO-LEVOCARB [Concomitant]
  11. BETAHISTINE [Concomitant]
  12. COVERSYL [Concomitant]
     Dosage: UNK, UNKNOWN
     Route: 065
  13. ATORVASTATIN [Concomitant]
     Dosage: UNK, UNKNOWN
     Route: 065

REACTIONS (10)
  - Fall [Recovered/Resolved]
  - Dizziness [Recovered/Resolved]
  - Gait disturbance [Not Recovered/Not Resolved]
  - Gallbladder disorder [Not Recovered/Not Resolved]
  - Blood glucose increased [Not Recovered/Not Resolved]
  - Joint injury [Unknown]
  - Face injury [Unknown]
  - Arthralgia [Not Recovered/Not Resolved]
  - Blood pressure increased [Unknown]
  - Orthostatic hypotension [Unknown]
